FAERS Safety Report 18794772 (Version 1)
Quarter: 2021Q1

REPORT INFORMATION
  Report Type: Spontaneous
  Country: US (occurrence: US)
  Receive Date: 20210127
  Receipt Date: 20210127
  Transmission Date: 20210419
  Serious: Yes (Hospitalization)
  Sender: FDA-Public Use
  Company Number: US-LUPIN PHARMACEUTICALS INC.-2021-00671

PATIENT
  Age: 6 Year
  Sex: Male

DRUGS (3)
  1. DOXYCYCLINE. [Suspect]
     Active Substance: DOXYCYCLINE
     Indication: LYMPHANGIECTASIA
     Dosage: UNK (TWO ROUNDS OF SCLEROTHERAPY WITH DOXYCYCLINE (NEARLY 13 MG/ML, PERFORMED 2 DAYS APART)
     Route: 065
  2. DOXYCYCLINE. [Suspect]
     Active Substance: DOXYCYCLINE
     Indication: SCLEROTHERAPY
  3. DOXYCYCLINE. [Suspect]
     Active Substance: DOXYCYCLINE
     Indication: NEPHROPATHY

REACTIONS (1)
  - Drug ineffective [Unknown]
